FAERS Safety Report 26082612 (Version 1)
Quarter: 2025Q4

REPORT INFORMATION
  Report Type: Spontaneous
  Country: US (occurrence: US)
  Receive Date: 20251124
  Receipt Date: 20251124
  Transmission Date: 20260118
  Serious: Yes (Life-Threatening, Hospitalization, Other)
  Sender: MYLAN
  Company Number: US-MYLANLABS-2025M1098599

PATIENT
  Age: 20 Year
  Sex: Female

DRUGS (32)
  1. MERCAPTOPURINE [Suspect]
     Active Substance: MERCAPTOPURINE
     Indication: Autoimmune hepatitis
     Dosage: UNK
  2. MERCAPTOPURINE [Suspect]
     Active Substance: MERCAPTOPURINE
     Dosage: UNK
     Route: 065
  3. MERCAPTOPURINE [Suspect]
     Active Substance: MERCAPTOPURINE
     Dosage: UNK
     Route: 065
  4. MERCAPTOPURINE [Suspect]
     Active Substance: MERCAPTOPURINE
     Dosage: UNK
  5. AMPHOTERICIN B [Suspect]
     Active Substance: AMPHOTERICIN B
     Indication: Candida endophthalmitis
     Dosage: UNK
  6. AMPHOTERICIN B [Suspect]
     Active Substance: AMPHOTERICIN B
     Dosage: UNK
     Route: 065
  7. AMPHOTERICIN B [Suspect]
     Active Substance: AMPHOTERICIN B
     Dosage: UNK
     Route: 065
  8. AMPHOTERICIN B [Suspect]
     Active Substance: AMPHOTERICIN B
     Dosage: UNK
  9. FLUCONAZOLE [Suspect]
     Active Substance: FLUCONAZOLE
     Indication: Fungal peritonitis
     Dosage: UNK
  10. FLUCONAZOLE [Suspect]
     Active Substance: FLUCONAZOLE
     Dosage: UNK
     Route: 065
  11. FLUCONAZOLE [Suspect]
     Active Substance: FLUCONAZOLE
     Dosage: UNK
     Route: 065
  12. FLUCONAZOLE [Suspect]
     Active Substance: FLUCONAZOLE
     Dosage: UNK
  13. FLUCYTOSINE [Suspect]
     Active Substance: FLUCYTOSINE
     Indication: Candida endophthalmitis
     Dosage: UNK
  14. FLUCYTOSINE [Suspect]
     Active Substance: FLUCYTOSINE
     Dosage: UNK
     Route: 065
  15. FLUCYTOSINE [Suspect]
     Active Substance: FLUCYTOSINE
     Dosage: UNK
     Route: 065
  16. FLUCYTOSINE [Suspect]
     Active Substance: FLUCYTOSINE
     Dosage: UNK
  17. MICAFUNGIN [Suspect]
     Active Substance: MICAFUNGIN SODIUM
     Indication: Fungal peritonitis
     Dosage: UNK
     Route: 065
  18. MICAFUNGIN [Suspect]
     Active Substance: MICAFUNGIN SODIUM
     Dosage: UNK
  19. MICAFUNGIN [Suspect]
     Active Substance: MICAFUNGIN SODIUM
     Dosage: UNK
  20. MICAFUNGIN [Suspect]
     Active Substance: MICAFUNGIN SODIUM
     Dosage: UNK
     Route: 065
  21. MICAFUNGIN [Suspect]
     Active Substance: MICAFUNGIN SODIUM
     Dosage: UNK (RESTARTED)
     Route: 065
  22. MICAFUNGIN [Suspect]
     Active Substance: MICAFUNGIN SODIUM
     Dosage: UNK (RESTARTED)
  23. MICAFUNGIN [Suspect]
     Active Substance: MICAFUNGIN SODIUM
     Dosage: UNK (RESTARTED)
  24. MICAFUNGIN [Suspect]
     Active Substance: MICAFUNGIN SODIUM
     Dosage: UNK (RESTARTED)
     Route: 065
  25. MEROPENEM [Concomitant]
     Active Substance: MEROPENEM
     Indication: Febrile neutropenia
     Dosage: UNK
  26. MEROPENEM [Concomitant]
     Active Substance: MEROPENEM
     Dosage: UNK
     Route: 065
  27. MEROPENEM [Concomitant]
     Active Substance: MEROPENEM
     Dosage: UNK
     Route: 065
  28. MEROPENEM [Concomitant]
     Active Substance: MEROPENEM
     Dosage: UNK
  29. LEUCOVORIN [Concomitant]
     Active Substance: LEUCOVORIN\LEUCOVORIN CALCIUM
     Indication: Chemotherapy side effect prophylaxis
     Dosage: UNK
  30. LEUCOVORIN [Concomitant]
     Active Substance: LEUCOVORIN\LEUCOVORIN CALCIUM
     Dosage: UNK
     Route: 065
  31. LEUCOVORIN [Concomitant]
     Active Substance: LEUCOVORIN\LEUCOVORIN CALCIUM
     Dosage: UNK
     Route: 065
  32. LEUCOVORIN [Concomitant]
     Active Substance: LEUCOVORIN\LEUCOVORIN CALCIUM
     Dosage: UNK

REACTIONS (3)
  - Drug ineffective [Unknown]
  - Pancytopenia [Unknown]
  - Off label use [Unknown]
